FAERS Safety Report 10072696 (Version 2)
Quarter: 2014Q2

REPORT INFORMATION
  Report Type: Spontaneous
  Country: US (occurrence: US)
  Receive Date: 20140411
  Receipt Date: 20140502
  Transmission Date: 20141212
  Serious: No
  Sender: FDA-Public Use
  Company Number: US-PFIZER INC-2014099951

PATIENT
  Age: 48 Year
  Sex: Female
  Weight: 70.3 kg

DRUGS (1)
  1. GABAPENTIN [Suspect]
     Dosage: 900 MG, 3X/DAY

REACTIONS (3)
  - Oedema [Unknown]
  - Fluid retention [Unknown]
  - Drug hypersensitivity [Unknown]
